FAERS Safety Report 5235276-4 (Version None)
Quarter: 2007Q1

REPORT INFORMATION
  Report Type: 
  Country: None (occurrence: None)
  Receive Date: 20070212
  Receipt Date: 20070206
  Transmission Date: 20070707
  Serious: Yes (Other)
  Sender: FDA-Public Use
  Company Number: DE-BAYER-200611474BVD

PATIENT
  Age: 95 Year
  Sex: Female
  Weight: 59 kg

DRUGS (4)
  1. AVELOX [Suspect]
     Indication: PNEUMONIA ASPIRATION
     Route: 048
  2. BISOPROLOL FUMARATE [Concomitant]
     Indication: CARDIAC FAILURE
  3. FUROSEMIDE [Concomitant]
     Indication: CARDIAC FAILURE
  4. ENALAPRIL MALEATE [Concomitant]
     Indication: CARDIAC FAILURE

REACTIONS (3)
  - ABSCESS [None]
  - MOUTH ULCERATION [None]
  - PYREXIA [None]
